FAERS Safety Report 11540218 (Version 2)
Quarter: 2015Q4

REPORT INFORMATION
  Report Type: Spontaneous
  Country: US (occurrence: US)
  Receive Date: 20150923
  Receipt Date: 20151127
  Transmission Date: 20160304
  Serious: No
  Sender: FDA-Public Use
  Company Number: US-PFIZER INC-2015307088

PATIENT
  Age: 56 Year
  Sex: Female
  Weight: 77 kg

DRUGS (6)
  1. GABAPENTIN. [Suspect]
     Active Substance: GABAPENTIN
     Indication: SPINAL OSTEOARTHRITIS
     Dosage: 600 MG, 3X/DAY
     Dates: start: 20150801, end: 20150808
  2. NEURONTIN [Suspect]
     Active Substance: GABAPENTIN
     Indication: SPINAL OSTEOARTHRITIS
  3. GABAPENTIN. [Suspect]
     Active Substance: GABAPENTIN
     Indication: THORACIC OUTLET SYNDROME
  4. GABAPENTIN. [Suspect]
     Active Substance: GABAPENTIN
     Indication: CUBITAL TUNNEL SYNDROME
  5. NEURONTIN [Suspect]
     Active Substance: GABAPENTIN
     Indication: CUBITAL TUNNEL SYNDROME
  6. NEURONTIN [Suspect]
     Active Substance: GABAPENTIN
     Indication: THORACIC OUTLET SYNDROME

REACTIONS (2)
  - Drug dispensing error [Unknown]
  - Product use issue [Unknown]

NARRATIVE: CASE EVENT DATE: 20150801
